FAERS Safety Report 15207691 (Version 2)
Quarter: 2019Q3

REPORT INFORMATION
  Report Type: Spontaneous
  Country: US (occurrence: US)
  Receive Date: 20180727
  Receipt Date: 20190808
  Transmission Date: 20191004
  Serious: No
  Sender: FDA-Public Use
  Company Number: US-ALLERGAN-1833208US

PATIENT
  Age: 61 Year
  Sex: Male

DRUGS (1)
  1. ANDRODERM [Suspect]
     Active Substance: TESTOSTERONE
     Indication: BLOOD TESTOSTERONE DECREASED
     Dosage: 1 PATCH EVERY 24 HOURS
     Route: 062
     Dates: start: 201705

REACTIONS (4)
  - Product packaging difficult to open [Unknown]
  - Malabsorption from application site [Unknown]
  - Product deposit [Unknown]
  - Wrong technique in product usage process [Unknown]
